FAERS Safety Report 9884278 (Version 2)
Quarter: 2014Q1

REPORT INFORMATION
  Report Type: Spontaneous
  Country: US (occurrence: US)
  Receive Date: 20140210
  Receipt Date: 20140210
  Transmission Date: 20141002
  Serious: No
  Sender: FDA-Public Use
  Company Number: US-ALLERGAN-1315760US

PATIENT
  Sex: Male
  Weight: 150 kg

DRUGS (3)
  1. BOTOX [Suspect]
     Indication: SKIN WRINKLING
     Dosage: UNK, SINGLE
     Dates: start: 20130814, end: 20130814
  2. BOTOX [Suspect]
     Indication: SKIN WRINKLING
     Dosage: UNK
     Dates: start: 20130814, end: 20130814
  3. BOTOX [Suspect]
     Indication: SKIN WRINKLING
     Dosage: 4 UNK, UNK
     Dates: start: 20130814, end: 20130814

REACTIONS (4)
  - Dyspnoea [Not Recovered/Not Resolved]
  - Asthenia [Not Recovered/Not Resolved]
  - Eyelid ptosis [Not Recovered/Not Resolved]
  - Drug ineffective [Unknown]
